FAERS Safety Report 6127277-9 (Version None)
Quarter: 2009Q1

REPORT INFORMATION
  Report Type: 
  Country: None (occurrence: None)
  Receive Date: 20090319
  Receipt Date: 20090305
  Transmission Date: 20090719
  Serious: Yes (Hospitalization)
  Sender: FDA-Public Use
  Company Number: 02100-JPN-07-0346

PATIENT
  Age: 60 Year
  Sex: Male

DRUGS (2)
  1. PLAVIX [Suspect]
     Indication: CEREBRAL INFARCTION
     Dosage: 75 MG, DAILY DOSE, ORAL :  75 MG, DAILY DOSE, ORAL
     Route: 048
     Dates: start: 20060106, end: 20060119
  2. PLAVIX [Suspect]
     Indication: CEREBRAL INFARCTION
     Dosage: 75 MG, DAILY DOSE, ORAL :  75 MG, DAILY DOSE, ORAL
     Route: 048
     Dates: start: 20060120, end: 20060803

REACTIONS (1)
  - HAND FRACTURE [None]
